FAERS Safety Report 15857404 (Version 1)
Quarter: 2019Q1

REPORT INFORMATION
  Report Type: Spontaneous
  Country: US (occurrence: US)
  Receive Date: 20190122
  Receipt Date: 20190122
  Transmission Date: 20190417
  Serious: Yes (Disabling)
  Sender: FDA-Public Use
  Company Number: None

PATIENT
  Age: 29 Year
  Sex: Female
  Weight: 126 kg

DRUGS (8)
  1. MULTIVITAMIN [Concomitant]
     Active Substance: VITAMINS
  2. TIZIDINE [Concomitant]
  3. PERCOCET [Concomitant]
     Active Substance: ACETAMINOPHEN\OXYCODONE HYDROCHLORIDE
  4. TENS UNIT [Concomitant]
  5. LIDOCAINE 5 % [Suspect]
     Active Substance: LIDOCAINE
     Indication: ARACHNOIDITIS
     Dosage: ?          QUANTITY:1 PATCH(ES);?
     Route: 062
     Dates: start: 20190111, end: 20190111
  6. ALLEGRA [Concomitant]
     Active Substance: FEXOFENADINE HYDROCHLORIDE
  7. TURMERIC [Concomitant]
     Active Substance: HERBALS\TURMERIC
  8. OXYCODONE 5/ACETEMENOPHINE [Suspect]
     Active Substance: ACETAMINOPHEN\OXYCODONE HYDROCHLORIDE
     Indication: ARACHNOIDITIS
     Dosage: ?          QUANTITY:1 TABLET(S);?
     Route: 048
     Dates: start: 20190111, end: 20190122

REACTIONS (7)
  - Back pain [None]
  - Product substitution issue [None]
  - Anxiety [None]
  - Nausea [None]
  - Product adhesion issue [None]
  - Neuralgia [None]
  - Drug ineffective [None]

NARRATIVE: CASE EVENT DATE: 20190112
